FAERS Safety Report 8010064-4 (Version None)
Quarter: 2011Q4

REPORT INFORMATION
  Report Type: 
  Country: None (occurrence: None)
  Receive Date: 20111228
  Receipt Date: 20111220
  Transmission Date: 20120403
  Serious: Yes (Other)
  Sender: FDA-Public Use
  Company Number: US-BRISTOL-MYERS SQUIBB COMPANY-16306250

PATIENT
  Sex: Male

DRUGS (1)
  1. SPRYCEL [Suspect]

REACTIONS (7)
  - PENIS DISORDER [None]
  - BLISTER [None]
  - SCROTAL DISORDER [None]
  - RASH [None]
  - FEELING COLD [None]
  - SKIN EXFOLIATION [None]
  - PERIPHERAL COLDNESS [None]
